FAERS Safety Report 4577606-2 (Version None)
Quarter: 2005Q1

REPORT INFORMATION
  Report Type: 
  Country: None (occurrence: None)
  Receive Date: 20050208
  Receipt Date: 20050124
  Transmission Date: 20050727
  Serious: Yes (Hospitalization)
  Sender: FDA-Public Use
  Company Number: 2005CG00191

PATIENT
  Age: 52 Year
  Sex: Female

DRUGS (5)
  1. NOLVADEX [Suspect]
     Dosage: 20 MG QD PO
     Route: 048
     Dates: start: 19990101
  2. ENDOTELON [Suspect]
     Dosage: 150 MG BID PO
     Route: 048
     Dates: start: 19990101
  3. STABLON [Suspect]
     Dosage: 12.5 MG QD PO
     Route: 048
     Dates: end: 20040915
  4. DEROXAT [Concomitant]
  5. VOGALENE [Concomitant]

REACTIONS (2)
  - AUTONOMIC NERVOUS SYSTEM IMBALANCE [None]
  - ORTHOSTATIC HYPOTENSION [None]
